FAERS Safety Report 6037477-4 (Version None)
Quarter: 2009Q1

REPORT INFORMATION
  Report Type: 
  Country: None (occurrence: None)
  Receive Date: 20090114
  Receipt Date: 20090106
  Transmission Date: 20090719
  Serious: Yes (Other)
  Sender: FDA-Public Use
  Company Number: US-ELI_LILLY_AND_COMPANY-US200806006544

PATIENT
  Weight: 95.238 kg

DRUGS (10)
  1. BYETTA [Suspect]
     Indication: TYPE 2 DIABETES MELLITUS
     Dosage: 5 UG, 2/D
     Route: 058
     Dates: start: 20080101, end: 20080201
  2. BYETTA [Suspect]
     Dosage: 10 UG, 2/D
     Route: 058
     Dates: start: 20080201, end: 20080625
  3. ZOCOR [Concomitant]
     Indication: BLOOD CHOLESTEROL
     Dosage: UNK, EACH EVENING
  4. LYRICA [Concomitant]
     Indication: TRIGEMINAL NEURALGIA
     Dosage: 300 MG, 3/D
  5. BACLOFEN [Concomitant]
     Indication: TRIGEMINAL NEURALGIA
     Dosage: 20 MG, 3/D
  6. FLOMAX [Concomitant]
     Indication: PROSTATIC DISORDER
     Dosage: UNK, UNKNOWN
  7. LISINOPRIL [Concomitant]
     Indication: BLOOD PRESSURE
     Dosage: 5 MG, DAILY (1/D)
  8. GLIPIZIDE [Concomitant]
     Indication: TYPE 2 DIABETES MELLITUS
     Dosage: 20 MG, 2/D
     Dates: start: 19980101, end: 20080501
  9. GLIPIZIDE [Concomitant]
     Dosage: 10 MG, EACH MORNING
     Dates: start: 20080501
  10. GLIPIZIDE [Concomitant]
     Dosage: 20 MG, EACH EVENING
     Dates: start: 20080501

REACTIONS (9)
  - ABNORMAL BEHAVIOUR [None]
  - ASTHENIA [None]
  - BLOOD GLUCOSE DECREASED [None]
  - BLOOD GLUCOSE INCREASED [None]
  - DEPRESSED LEVEL OF CONSCIOUSNESS [None]
  - DRUG INEFFECTIVE [None]
  - LETHARGY [None]
  - ROAD TRAFFIC ACCIDENT [None]
  - TRIGEMINAL NEURALGIA [None]
